FAERS Safety Report 8913415 (Version 2)
Quarter: 2013Q1

REPORT INFORMATION
  Report Type: Spontaneous
  Country: US (occurrence: US)
  Receive Date: 20121119
  Receipt Date: 20130208
  Transmission Date: 20140127
  Serious: Yes (Other)
  Sender: FDA-Public Use
  Company Number: US-ASTELLAS-2012US011040

PATIENT
  Sex: Female

DRUGS (1)
  1. PROTOPIC [Suspect]
     Indication: RASH
     Dosage: UNK
     Route: 061
     Dates: end: 20121104

REACTIONS (4)
  - Off label use [Unknown]
  - Skin reaction [Not Recovered/Not Resolved]
  - Insomnia [Not Recovered/Not Resolved]
  - Pruritus [Not Recovered/Not Resolved]
